FAERS Safety Report 22936106 (Version 2)
Quarter: 2023Q4

REPORT INFORMATION
  Report Type: Spontaneous
  Country: US (occurrence: None)
  Receive Date: 20230912
  Receipt Date: 20231017
  Transmission Date: 20240109
  Serious: Yes (Hospitalization, Other)
  Sender: FDA-Public Use
  Company Number: 2023A207236

PATIENT

DRUGS (1)
  1. FARXIGA [Suspect]
     Active Substance: DAPAGLIFLOZIN PROPANEDIOL
     Route: 048

REACTIONS (4)
  - Cardiac valve disease [Unknown]
  - Hyperglycaemic hyperosmolar nonketotic syndrome [Recovered/Resolved]
  - Chorea [Recovered/Resolved]
  - Coronary artery disease [Unknown]
